FAERS Safety Report 21610146 (Version 2)
Quarter: 2023Q1

REPORT INFORMATION
  Report Type: Spontaneous
  Country: US (occurrence: US)
  Receive Date: 20221117
  Receipt Date: 20230111
  Transmission Date: 20230418
  Serious: No
  Sender: FDA-Public Use
  Company Number: US-UNITED THERAPEUTICS-UNT-2022-027214

PATIENT
  Sex: Female

DRUGS (4)
  1. REMODULIN [Suspect]
     Active Substance: TREPROSTINIL
     Indication: Pulmonary arterial hypertension
     Dosage: UNK, CONTINUING
     Route: 058
     Dates: start: 20220124
  2. REMODULIN [Suspect]
     Active Substance: TREPROSTINIL
     Dosage: 0.0647 ?G/KG, CONTINUING
     Route: 058
     Dates: start: 2022
  3. TRAMADOL [Suspect]
     Active Substance: TRAMADOL
     Indication: Infusion site pain
     Dosage: 50 MG, BID EVERY 7 AM AND 3 PM
     Route: 065
     Dates: start: 2022
  4. GABAPENTIN [Suspect]
     Active Substance: GABAPENTIN
     Indication: Infusion site pain
     Dosage: 200 MG, QD (100 MG 2 AT 9 PM)
     Route: 065
     Dates: start: 2022

REACTIONS (3)
  - Infusion site pain [Not Recovered/Not Resolved]
  - Unintentional medical device removal [Unknown]
  - Therapy non-responder [Unknown]

NARRATIVE: CASE EVENT DATE: 20220101
